FAERS Safety Report 8119911-9 (Version None)
Quarter: 2012Q1

REPORT INFORMATION
  Report Type: 
  Country: None (occurrence: None)
  Receive Date: 20120206
  Receipt Date: 20120206
  Transmission Date: 20120608
  Serious: Yes (Life-Threatening, Hospitalization)
  Sender: FDA-Public Use
  Company Number: None

PATIENT
  Sex: Female

DRUGS (1)
  1. COUMADIN [Suspect]
     Indication: ATRIAL FIBRILLATION
     Dosage: 2.5 DAILY PO
     Route: 048
     Dates: start: 20110501, end: 20111201

REACTIONS (3)
  - HAEMOTHORAX [None]
  - PULMONARY CONGESTION [None]
  - PULMONARY HAEMORRHAGE [None]
